FAERS Safety Report 11448911 (Version 4)
Quarter: 2016Q1

REPORT INFORMATION
  Report Type: Spontaneous
  Country: US (occurrence: US)
  Receive Date: 20150902
  Receipt Date: 20160127
  Transmission Date: 20160525
  Serious: Yes (Other)
  Sender: FDA-Public Use
  Company Number: US-PFIZER INC-2015289059

PATIENT
  Age: 68 Year
  Sex: Male
  Weight: 94 kg

DRUGS (3)
  1. BOSULIF [Suspect]
     Active Substance: BOSUTINIB MONOHYDRATE
     Dosage: 400 MG (100 MG TABLET 4 TABLETS), 1X/DAY
     Route: 048
     Dates: start: 20150728
  2. BOSULIF [Suspect]
     Active Substance: BOSUTINIB MONOHYDRATE
     Indication: CHRONIC MYELOID LEUKAEMIA
     Dosage: 500 MG, DAILY
     Route: 048
     Dates: start: 201507
  3. BOSULIF [Suspect]
     Active Substance: BOSUTINIB MONOHYDRATE
     Dosage: 400 MG, DAILY
     Route: 048

REACTIONS (5)
  - Intentional product misuse [Unknown]
  - Diarrhoea [Recovered/Resolved]
  - Abdominal pain [Unknown]
  - Feeling abnormal [Recovered/Resolved]
  - Tooth abscess [Unknown]

NARRATIVE: CASE EVENT DATE: 20150823
